FAERS Safety Report 23951688 (Version 1)
Quarter: 2024Q2

REPORT INFORMATION
  Report Type: Spontaneous
  Country: US (occurrence: None)
  Receive Date: 20240604
  Receipt Date: 20240604
  Transmission Date: 20240716
  Serious: Yes (Hospitalization, Other)
  Sender: FDA-Public Use
  Company Number: None

PATIENT
  Age: 15 Year
  Sex: Female
  Weight: 69.9 kg

DRUGS (1)
  1. HERBALS\MUSHROOMS UNSPECIFIED [Suspect]
     Active Substance: HERBALS\MUSHROOMS UNSPECIFIED

REACTIONS (5)
  - Mood altered [None]
  - Abnormal behaviour [None]
  - Clonus [None]
  - Agitation [None]
  - Hallucination [None]

NARRATIVE: CASE EVENT DATE: 20240602
